FAERS Safety Report 15492665 (Version 5)
Quarter: 2019Q2

REPORT INFORMATION
  Report Type: Spontaneous
  Country: ES (occurrence: ES)
  Receive Date: 20181012
  Receipt Date: 20190503
  Transmission Date: 20190711
  Serious: Yes (Hospitalization, Other)
  Sender: FDA-Public Use
  Company Number: ES-BIODELIVERY SCIENCES INTERNATIONAL-2018BDSI0177

PATIENT
  Age: 87 Year
  Sex: Male

DRUGS (22)
  1. LATANOPROST. [Suspect]
     Active Substance: LATANOPROST
     Indication: PRODUCT USED FOR UNKNOWN INDICATION
     Dosage: DRUG INTERVAL DOSAGE UNIT NUMBER:1 DAY
     Route: 065
  2. FLUOXETINE HYDROCHLORIDE. [Suspect]
     Active Substance: FLUOXETINE HYDROCHLORIDE
     Indication: PRODUCT USED FOR UNKNOWN INDICATION
     Dosage: DRUG INTERVAL DOSAGE UNIT NUMBER:1 DAY
     Route: 065
  3. VILDAGLIPTIN [Suspect]
     Active Substance: VILDAGLIPTIN
     Indication: TYPE 2 DIABETES MELLITUS
     Dosage: DRUG INTERVAL DOSAGE UNIT NUMBER:1 DAY
     Route: 065
  4. BUDESONIDE. [Suspect]
     Active Substance: BUDESONIDE
     Route: 065
  5. APIXABAN [Suspect]
     Active Substance: APIXABAN
     Indication: CEREBROVASCULAR ACCIDENT PROPHYLAXIS
     Dosage: DRUG INTERVAL DOSAGE UNIT NUMBER:1 DAY
     Route: 065
  6. FENTANYL CITRATE. [Suspect]
     Active Substance: FENTANYL CITRATE
     Indication: DYSPNOEA
     Route: 048
     Dates: start: 201801
  7. SALBUTAMOL SULFATE/IPRATROPIUM BROMIDE MONOHYDRATE [Suspect]
     Active Substance: ALBUTEROL SULFATE\IPRATROPIUM BROMIDE
     Indication: PRODUCT USED FOR UNKNOWN INDICATION
     Route: 045
  8. QUETIAPINE. [Suspect]
     Active Substance: QUETIAPINE
     Indication: PRODUCT USED FOR UNKNOWN INDICATION
     Dosage: DRUG INTERVAL DOSAGE UNIT NUMBER: 1 DAY
     Route: 065
  9. VILDAGLIPTIN [Suspect]
     Active Substance: VILDAGLIPTIN
     Dosage: 100 MG, QD
     Route: 048
  10. SALBUTAMOL SULFATE/IPRATROPIUM BROMIDE MONOHYDRATE [Suspect]
     Active Substance: ALBUTEROL SULFATE\IPRATROPIUM BROMIDE
     Dosage: 1 DF, Q6H,DRUG INTERVAL DOSAGE UNIT NUMBER:1 DAY
     Route: 065
  11. IPRATROPIUM BROMIDE. [Suspect]
     Active Substance: IPRATROPIUM BROMIDE
     Route: 045
  12. FENTANYL. [Suspect]
     Active Substance: FENTANYL
     Indication: DYSPNOEA
  13. FUROSEMIDE. [Concomitant]
     Active Substance: FUROSEMIDE
     Indication: PRODUCT USED FOR UNKNOWN INDICATION
  14. MIRABEGRON [Suspect]
     Active Substance: MIRABEGRON
     Indication: PRODUCT USED FOR UNKNOWN INDICATION
     Dosage: DRUG INTERVAL DOSAGE UNIT NUMBER:1 DAY
     Route: 065
  15. IPRATROPIUM BROMIDE. [Suspect]
     Active Substance: IPRATROPIUM BROMIDE
     Indication: PRODUCT USED FOR UNKNOWN INDICATION
     Route: 045
  16. QUETIAPINE FUMARATE. [Concomitant]
     Active Substance: QUETIAPINE FUMARATE
     Indication: PRODUCT USED FOR UNKNOWN INDICATION
  17. BUDESONIDE. [Concomitant]
     Active Substance: BUDESONIDE
     Indication: PRODUCT USED FOR UNKNOWN INDICATION
     Route: 045
  18. VILDAGLIPTIN [Concomitant]
     Active Substance: VILDAGLIPTIN
     Indication: PRODUCT USED FOR UNKNOWN INDICATION
  19. FUROSEMIDE. [Suspect]
     Active Substance: FUROSEMIDE
     Indication: PRODUCT USED FOR UNKNOWN INDICATION
     Dosage: DRUG INTERVAL DOSAGE UNIT NUMBER:1 DAY
  20. FUROSEMIDE. [Suspect]
     Active Substance: FUROSEMIDE
  21. BUDESONIDE. [Suspect]
     Active Substance: BUDESONIDE
     Indication: PRODUCT USED FOR UNKNOWN INDICATION
     Dosage: DRUG INTERVAL DOSAGE UNIT NUMBER:1 DAY
  22. LATANOPROST. [Concomitant]
     Active Substance: LATANOPROST
     Indication: PRODUCT USED FOR UNKNOWN INDICATION

REACTIONS (16)
  - Product use in unapproved indication [Unknown]
  - Respiratory failure [Recovered/Resolved]
  - Oedema peripheral [Unknown]
  - Respiratory tract infection [Unknown]
  - Heart rate abnormal [Unknown]
  - Arrhythmia [Unknown]
  - Bone marrow oedema [Unknown]
  - Haemoglobin abnormal [Unknown]
  - C-reactive protein abnormal [Unknown]
  - Blood pressure abnormal [Unknown]
  - Lung infection [Unknown]
  - Bronchiectasis [Unknown]
  - Peripheral venous disease [Unknown]
  - Dyspnoea [Recovered/Resolved]
  - White blood cell count abnormal [Unknown]
  - Tachypnoea [Unknown]

NARRATIVE: CASE EVENT DATE: 201801
